FAERS Safety Report 9359162 (Version 1)
Quarter: 2013Q2

REPORT INFORMATION
  Report Type: Spontaneous
  Country: CA (occurrence: CA)
  Receive Date: 20130620
  Receipt Date: 20130620
  Transmission Date: 20140414
  Serious: Yes (Other)
  Sender: FDA-Public Use
  Company Number: CA-TEVA-413949USA

PATIENT
  Sex: 0

DRUGS (1)
  1. DILTIAZEM [Suspect]
     Dosage: 120 MILLIGRAM DAILY;
     Route: 065

REACTIONS (1)
  - Convulsion [Recovered/Resolved]
